FAERS Safety Report 7623071-8 (Version None)
Quarter: 2011Q3

REPORT INFORMATION
  Report Type: 
  Country: None (occurrence: None)
  Receive Date: 20110720
  Receipt Date: 20110708
  Transmission Date: 20111222
  Serious: Yes (Other)
  Sender: FDA-Public Use
  Company Number: US-AMGEN-USASP2011034795

PATIENT
  Age: 54 Year
  Sex: Male

DRUGS (3)
  1. PREDNISONE [Concomitant]
     Dosage: UNK
  2. AZATHIOPRINE [Concomitant]
     Dosage: 1 MG, UNK
  3. ENBREL [Suspect]
     Indication: WEBER-CHRISTIAN DISEASE
     Dosage: 50 MG, QWK
     Dates: start: 20100101, end: 20110601

REACTIONS (2)
  - MALAISE [None]
  - APLASIA PURE RED CELL [None]
